FAERS Safety Report 8522429-2 (Version None)
Quarter: 2012Q3

REPORT INFORMATION
  Report Type: 
  Country: None (occurrence: None)
  Receive Date: 20120719
  Receipt Date: 20120711
  Transmission Date: 20120928
  Serious: Yes (Hospitalization)
  Sender: FDA-Public Use
  Company Number: GB-TEVA-347658ISR

PATIENT
  Sex: Male
  Weight: 100 kg

DRUGS (3)
  1. ACETAMINOPHEN [Concomitant]
     Indication: PAIN
     Dosage: TREATMENT CONTINUED.
     Route: 048
     Dates: start: 20080101
  2. AMLODIPINE [Suspect]
     Indication: HYPERTENSION
     Route: 048
     Dates: start: 20120613, end: 20120628
  3. CODEINE SULFATE [Concomitant]
     Indication: PAIN
     Dosage: DRUG CONTINUED.
     Route: 048
     Dates: start: 20080101

REACTIONS (1)
  - TESTICULAR SWELLING [None]
